FAERS Safety Report 6860465-2 (Version None)
Quarter: 2010Q3

REPORT INFORMATION
  Report Type: 
  Country: None (occurrence: None)
  Receive Date: 20100720
  Receipt Date: 20100709
  Transmission Date: 20110219
  Serious: Yes (Hospitalization)
  Sender: FDA-Public Use
  Company Number: CO-ROCHE-714395

PATIENT
  Sex: Male

DRUGS (2)
  1. AVASTIN [Suspect]
     Indication: COLORECTAL CANCER
     Dosage: FORM: INFUSION, LAST DOSE PRIOR TO SAE: 29 JUNE 2010.
     Route: 042
     Dates: start: 20090801
  2. OXYCODONE HCL [Concomitant]
     Indication: PAIN
     Dosage: FREQUENCY REPORTED AS PRN.
     Route: 048

REACTIONS (2)
  - ABDOMINAL PAIN [None]
  - PARAESTHESIA [None]
